FAERS Safety Report 17928218 (Version 3)
Quarter: 2020Q4

REPORT INFORMATION
  Report Type: Other
  Country: CA (occurrence: CA)
  Receive Date: 20200623
  Receipt Date: 20201112
  Transmission Date: 20210113
  Serious: Yes (Other)
  Sender: FDA-Public Use
  Company Number: CA-APOTEX-2020AP012442

PATIENT
  Age: 50 Year
  Sex: Female

DRUGS (15)
  1. BETAMETHASONE VALERATE. [Concomitant]
     Active Substance: BETAMETHASONE VALERATE
     Indication: ECZEMA
     Dosage: 1 DF, BID
     Route: 061
  2. CETIRIZINE HYDROCHLORIDE. [Concomitant]
     Active Substance: CETIRIZINE HYDROCHLORIDE
     Indication: ECZEMA
     Dosage: 1 DF, QD
     Route: 048
  3. PREDNISONE. [Concomitant]
     Active Substance: PREDNISONE
     Indication: ECZEMA
     Dosage: 1 DF, QD
     Route: 048
  4. OMALIZUMAB. [Suspect]
     Active Substance: OMALIZUMAB
     Indication: ECZEMA
     Dosage: 300 MG, CYCLICAL
     Route: 058
  5. SYNTHROID [Concomitant]
     Active Substance: LEVOTHYROXINE SODIUM
     Indication: HYPOTHYROIDISM
     Dosage: 1 DF, QD
     Route: 048
  6. CYCLOSPORINE. [Suspect]
     Active Substance: CYCLOSPORINE
     Indication: PRODUCT USED FOR UNKNOWN INDICATION
     Dosage: UNK
     Route: 065
  7. HYDROXYZINE [Concomitant]
     Active Substance: HYDROXYZINE HYDROCHLORIDE
     Indication: ECZEMA
     Dosage: 2 DF, QID
     Route: 048
  8. KENALOG [Concomitant]
     Active Substance: TRIAMCINOLONE ACETONIDE
     Indication: PRURITUS
     Dosage: 1 DF, UNK (SUSPENSION INTRAARTICULAR)
     Route: 030
  9. METHOTREXATE. [Suspect]
     Active Substance: METHOTREXATE
     Indication: PRODUCT USED FOR UNKNOWN INDICATION
     Dosage: UNK
     Route: 065
  10. OMALIZUMAB. [Suspect]
     Active Substance: OMALIZUMAB
     Indication: CHRONIC SPONTANEOUS URTICARIA
     Dosage: 300 MILLIGRAM, Q.O.WK.
     Route: 058
  11. CIPRALEX [Concomitant]
     Active Substance: ESCITALOPRAM OXALATE
     Indication: DEPRESSION
     Dosage: 1 DF, QD
     Route: 048
  12. REACTINE [CETIRIZINE HYDROCHLORIDE] [Concomitant]
     Active Substance: CETIRIZINE HYDROCHLORIDE
     Indication: ECZEMA
     Dosage: 1 DOSAGE FORM, QD
     Route: 048
  13. METHOTREXATE. [Suspect]
     Active Substance: METHOTREXATE
     Indication: PRODUCT USED FOR UNKNOWN INDICATION
     Route: 065
  14. ERYTHROMYCIN. [Concomitant]
     Active Substance: ERYTHROMYCIN
     Indication: ECZEMA
     Dosage: 1 DF, UNK
     Route: 048
  15. ZOPICLONE [Suspect]
     Active Substance: ZOPICLONE
     Indication: INSOMNIA
     Dosage: 1 DF, QD
     Route: 048

REACTIONS (11)
  - Drug hypersensitivity [Unknown]
  - Gait disturbance [Unknown]
  - Dyspnoea [Unknown]
  - Hypersensitivity [Unknown]
  - Oropharyngeal pain [Unknown]
  - Pelvic fracture [Unknown]
  - Chills [Unknown]
  - Pyrexia [Unknown]
  - Therapeutic response unexpected [Unknown]
  - Nasal congestion [Unknown]
  - Fall [Unknown]
